FAERS Safety Report 9010935 (Version 1)
Quarter: 2013Q1

REPORT INFORMATION
  Report Type: Spontaneous
  Country: US (occurrence: US)
  Receive Date: 20130109
  Receipt Date: 20130109
  Transmission Date: 20140127
  Serious: Yes (Hospitalization)
  Sender: FDA-Public Use
  Company Number: US-ELI_LILLY_AND_COMPANY-US201301001074

PATIENT
  Age: 66 Year
  Sex: Male

DRUGS (31)
  1. EFFIENT [Suspect]
     Dosage: 5 MG, QD
     Dates: start: 20101027, end: 20111108
  2. EFFIENT [Suspect]
     Dosage: 10 MG, QD
     Dates: start: 20111109, end: 20120925
  3. ASPIRIN [Concomitant]
     Dosage: 81 MG, QD
     Dates: start: 200804, end: 20111231
  4. ASPIRIN [Concomitant]
     Dosage: 325 MG, SINGLE
     Dates: start: 20120101, end: 20120101
  5. ASPIRIN [Concomitant]
     Dosage: 81 MG, QD
     Dates: start: 20120102, end: 20120925
  6. AMLODIPINE [Concomitant]
     Dosage: 5 MG, QD
     Dates: start: 199906
  7. ATENOLOL [Concomitant]
     Dosage: 50 MG, QD
     Dates: start: 199712, end: 201108
  8. ATENOLOL [Concomitant]
     Dosage: 100 MG, QD
     Dates: start: 201108
  9. METFORMIN [Concomitant]
     Dosage: 1000 MG, QD
     Dates: start: 2008, end: 20111229
  10. METFORMIN [Concomitant]
     Dosage: 1000 MG, QD
     Dates: start: 20120101
  11. FUROSEMIDE [Concomitant]
     Dosage: 80 MG, QD
     Dates: start: 20050421
  12. GLIMEPIRIDE [Concomitant]
     Dosage: 4 MG, QD
     Dates: start: 200907
  13. EZETIMIBE [Concomitant]
     Dosage: 10 MG, QD
     Dates: start: 20050505
  14. SIMVASTATIN [Concomitant]
     Dosage: 40 MG, QD
     Dates: start: 20050505
  15. ESOMEPRAZOLE [Concomitant]
     Dosage: 40 MG, QD
     Dates: start: 20090310, end: 20111229
  16. ALPRAZOLAM [Concomitant]
     Dosage: .25 MG, PRN
     Dates: start: 20050502, end: 20111230
  17. ALPRAZOLAM [Concomitant]
     Dosage: .25 MG, PRN
     Dates: start: 20020101
  18. ESCITALOPRAM [Concomitant]
     Dosage: 10 MG, QD
     Dates: start: 201009
  19. VALSARTAN [Concomitant]
     Dosage: 160 MG, QD
     Dates: start: 2010
  20. NITROGLYCERIN [Concomitant]
     Dosage: .4 MG, PRN
     Dates: start: 1996
  21. NITROGLYCERIN [Concomitant]
     Dosage: UNK DF, SINGLE
     Dates: start: 20120922, end: 20120922
  22. FLUTICASONE PROPIONATE [Concomitant]
     Dosage: 1 DF, PRN
     Route: 045
     Dates: start: 2000
  23. CILOSTAZOL [Concomitant]
     Dosage: 100 MG, QD
     Dates: start: 20101025, end: 20110531
  24. DABIGATRAN ETEXILATE [Concomitant]
     Dosage: 300 MG, QD
     Dates: start: 20110531, end: 20111108
  25. SPIRIVA [Concomitant]
     Dosage: 18 UG, QD
     Dates: start: 20110929
  26. ALBUTEROL [Concomitant]
     Dosage: 2 DF, PRN
     Dates: start: 20110929
  27. INSULIN LISPRO [Concomitant]
     Dosage: 2 IU, PRN
     Dates: start: 20111229, end: 20120102
  28. INSULIN LISPRO [Concomitant]
     Dosage: 6 U, PRN
     Dates: start: 20120922, end: 20120922
  29. PANTOPRAZOLE [Concomitant]
     Dosage: 40 MG, QD
     Dates: start: 20111230, end: 20120101
  30. PANTOPRAZOLE [Concomitant]
     Dosage: 40 MG, QD
     Dates: start: 20120923, end: 20120926
  31. DIAZEPAM [Concomitant]
     Dosage: 10 MG, SINGLE
     Dates: start: 20111231, end: 20111231

REACTIONS (3)
  - Angina pectoris [Recovered/Resolved]
  - Angina pectoris [Recovered/Resolved]
  - Pancytopenia [Unknown]
